FAERS Safety Report 7458850 (Version 4)
Quarter: 2014Q1

REPORT INFORMATION
  Report Type: Spontaneous
  Country: BR (occurrence: BR)
  Receive Date: 20100708
  Receipt Date: 20140120
  Transmission Date: 20141002
  Serious: Yes (Other)
  Sender: FDA-Public Use
  Company Number: BR-PFIZER INC-2010080818

PATIENT
  Age: 73 Year
  Sex: Male
  Weight: 74 kg

DRUGS (9)
  1. XALATAN [Suspect]
     Indication: GLAUCOMA
     Dosage: 1.5UG IN EACH EYE
     Route: 047
     Dates: start: 2009
  2. XALACOM [Suspect]
     Indication: GLAUCOMA
     Dosage: UNK
     Dates: start: 2012
  3. UNOPROSTONE ISOPROPYL [Suspect]
     Indication: PROSTATIC DISORDER
     Dosage: UNK
     Dates: start: 2009
  4. METFORMIN [Concomitant]
     Indication: DIABETES MELLITUS
     Dosage: UNK
     Dates: start: 2006
  5. DILACORON RETARD [Concomitant]
     Indication: HYPERTENSION
     Dosage: 240 MG, UNK
     Dates: start: 1980
  6. CO-RENITEC [Concomitant]
     Indication: HYPERTENSION
     Dosage: [ENALAPRIL MALEATE 20 MG]/[HYDROCHLOROTHIAZIDE 12.5 MG]
  7. SIMVASTATIN [Concomitant]
     Indication: BLOOD CHOLESTEROL
     Dosage: 20 MG, UNK
  8. CARDURA XL [Concomitant]
     Indication: PROSTATIC DISORDER
     Dosage: 4 MG, 1X/DAY, AT NIGHT
     Route: 048
     Dates: start: 2008
  9. CARDURA XL [Concomitant]
     Indication: DYSURIA

REACTIONS (12)
  - Syncope [Recovered/Resolved]
  - Pulse absent [Recovered/Resolved]
  - Malaise [Recovered/Resolved]
  - Visual impairment [Recovered/Resolved]
  - Cold sweat [Recovered/Resolved]
  - Hypotension [Recovered/Resolved]
  - Eye pain [Recovering/Resolving]
  - Ocular hyperaemia [Unknown]
  - Eyelash discolouration [Unknown]
  - Iris hyperpigmentation [Not Recovered/Not Resolved]
  - Conjunctivitis viral [Unknown]
  - Growth of eyelashes [Unknown]
